FAERS Safety Report 9541925 (Version 1)
Quarter: 2013Q3

REPORT INFORMATION
  Report Type: Spontaneous
  Country: FR (occurrence: FR)
  Receive Date: 20130923
  Receipt Date: 20130923
  Transmission Date: 20140515
  Serious: Yes (Hospitalization)
  Sender: FDA-Public Use
  Company Number: PHHY2013FR104484

PATIENT
  Age: 78 Year
  Sex: Female
  Weight: 61 kg

DRUGS (7)
  1. ACLASTA [Suspect]
     Indication: OSTEOPOROSIS
     Dosage: 5 MG, 1 SINGLE INTAKE
     Route: 042
     Dates: start: 20120612
  2. DETENSIEL [Concomitant]
  3. MOPRAL [Concomitant]
  4. EVISTA [Concomitant]
  5. DEDROGYL [Concomitant]
  6. DOLIPRANE [Concomitant]
  7. VITAMIN D [Concomitant]
     Indication: OSTEOPOROSIS
     Dosage: UNK

REACTIONS (6)
  - Generalised erythema [Recovered/Resolved]
  - Eye irritation [Recovered/Resolved]
  - Chest pain [Recovered/Resolved]
  - Pyrexia [Recovered/Resolved]
  - Nausea [Recovered/Resolved]
  - Arthritis [Recovered/Resolved]
